FAERS Safety Report 17688128 (Version 1)
Quarter: 2020Q2

REPORT INFORMATION
  Report Type: Spontaneous
  Country: US (occurrence: US)
  Receive Date: 20200420
  Receipt Date: 20200420
  Transmission Date: 20200714
  Serious: No
  Sender: FDA-Public Use
  Company Number: None

PATIENT
  Age: 58 Year
  Sex: Female

DRUGS (1)
  1. OCTREOTIDE PFS 50MCG/ML [Suspect]
     Active Substance: OCTREOTIDE ACETATE
     Indication: GASTROINTESTINAL DISORDER
     Route: 058
     Dates: start: 20190521

REACTIONS (3)
  - Nausea [None]
  - Therapy interrupted [None]
  - Product availability issue [None]

NARRATIVE: CASE EVENT DATE: 20200420
